FAERS Safety Report 21744970 (Version 1)
Quarter: 2022Q4

REPORT INFORMATION
  Report Type: Report from Study
  Country: BR (occurrence: BR)
  Receive Date: 20221219
  Receipt Date: 20221219
  Transmission Date: 20230113
  Serious: Yes (Disabling)
  Sender: FDA-Public Use
  Company Number: BR-CELLTRION INC.-2022BR019919

PATIENT

DRUGS (1)
  1. INFLIXIMAB [Suspect]
     Active Substance: INFLIXIMAB
     Indication: Rheumatoid arthritis
     Dosage: 2 AMPOULES EVERY 12 WEEKS
     Route: 042
     Dates: start: 20220919

REACTIONS (16)
  - Bedridden [Unknown]
  - Mobility decreased [Unknown]
  - Musculoskeletal stiffness [Unknown]
  - Peripheral swelling [Unknown]
  - Phlebitis [Unknown]
  - Arthralgia [Unknown]
  - Erythema [Unknown]
  - Infection [Unknown]
  - Localised infection [Unknown]
  - Muscular weakness [Unknown]
  - Pyrexia [Unknown]
  - Pruritus [Unknown]
  - Swelling [Unknown]
  - Loss of personal independence in daily activities [Unknown]
  - Disease recurrence [Unknown]
  - Drug ineffective [Unknown]

NARRATIVE: CASE EVENT DATE: 20221128
